FAERS Safety Report 4976303-9 (Version None)
Quarter: 2006Q2

REPORT INFORMATION
  Report Type: 
  Country: None (occurrence: None)
  Receive Date: 20060412
  Receipt Date: 20060403
  Transmission Date: 20061013
  Serious: Yes (Hospitalization)
  Sender: FDA-Public Use
  Company Number: 2006BI002048

PATIENT
  Age: 58 Year
  Sex: Male
  Weight: 95.2554 kg

DRUGS (7)
  1. AVONEX [Suspect]
     Indication: MULTIPLE SCLEROSIS
     Dosage: 30 UG; QW; IM
     Route: 030
     Dates: start: 20000101, end: 20030801
  2. AVONEX [Suspect]
     Indication: MULTIPLE SCLEROSIS
     Dosage: 30 UG; QW; IM
     Route: 030
     Dates: start: 20030801
  3. BACLOFEN [Concomitant]
  4. DETROL [Concomitant]
  5. DIOVAN HCT [Concomitant]
  6. LASIX [Concomitant]
  7. NULEV [Concomitant]

REACTIONS (3)
  - INFLUENZA LIKE ILLNESS [None]
  - PNEUMONIA [None]
  - URINARY TRACT INFECTION BACTERIAL [None]
